FAERS Safety Report 13092967 (Version 1)
Quarter: 2017Q1

REPORT INFORMATION
  Report Type: Spontaneous
  Country: US (occurrence: US)
  Receive Date: 20170106
  Receipt Date: 20170106
  Transmission Date: 20170428
  Serious: No
  Sender: FDA-Public Use
  Company Number: US-DRREDDYS-USA/USA/16/0084511

PATIENT
  Age: 36 Year
  Sex: Female
  Weight: 63.5 kg

DRUGS (2)
  1. HABITROL [Suspect]
     Active Substance: NICOTINE
     Route: 062
     Dates: start: 20161031
  2. HABITROL [Suspect]
     Active Substance: NICOTINE
     Indication: SMOKING CESSATION THERAPY
     Route: 065

REACTIONS (3)
  - Anxiety [Unknown]
  - Nicotine dependence [Unknown]
  - Product quality issue [Unknown]
